FAERS Safety Report 17433545 (Version 4)
Quarter: 2022Q1

REPORT INFORMATION
  Report Type: Other
  Country: BR (occurrence: BR)
  Receive Date: 20200219
  Receipt Date: 20220106
  Transmission Date: 20220423
  Serious: Yes (Hospitalization, Other)
  Sender: FDA-Public Use
  Company Number: BR-002147023-PHHY2015BR155140

PATIENT
  Age: 74 Year
  Sex: Female
  Weight: 55 kg

DRUGS (8)
  1. XOLAIR [Suspect]
     Active Substance: OMALIZUMAB
     Indication: Urticaria
     Route: 058
     Dates: start: 20150515
  2. XOLAIR [Suspect]
     Active Substance: OMALIZUMAB
     Indication: Chronic spontaneous urticaria
     Route: 058
     Dates: start: 20151123
  3. XOLAIR [Suspect]
     Active Substance: OMALIZUMAB
     Route: 058
     Dates: start: 20180125
  4. XOLAIR [Suspect]
     Active Substance: OMALIZUMAB
     Dosage: (1 AMPOULE A MONTH)
     Route: 058
     Dates: start: 20180226
  5. XOLAIR [Suspect]
     Active Substance: OMALIZUMAB
     Route: 058
     Dates: start: 20180325
  6. XOLAIR [Suspect]
     Active Substance: OMALIZUMAB
     Route: 058
     Dates: start: 201805
  7. XOLAIR [Suspect]
     Active Substance: OMALIZUMAB
     Route: 058
     Dates: start: 201911, end: 201912
  8. XOLAIR [Suspect]
     Active Substance: OMALIZUMAB
     Dosage: POWDER AND SOLVENT FOR SOLUTION FOR INJECTION
     Route: 065
     Dates: start: 20211217

REACTIONS (18)
  - Pneumonia [Recovering/Resolving]
  - Sepsis [Unknown]
  - Malaise [Unknown]
  - Feeling abnormal [Unknown]
  - Myocardial infarction [Unknown]
  - Breast cancer [Recovering/Resolving]
  - Myocardial ischaemia [Recovering/Resolving]
  - Urticaria [Not Recovered/Not Resolved]
  - Insomnia [Recovering/Resolving]
  - Pruritus [Not Recovered/Not Resolved]
  - Erythema [Recovering/Resolving]
  - Feeling of despair [Unknown]
  - Cough [Not Recovered/Not Resolved]
  - Decreased immune responsiveness [Unknown]
  - Dysphonia [Unknown]
  - Hypersensitivity [Unknown]
  - Drug ineffective [Unknown]
  - Inappropriate schedule of product administration [Unknown]

NARRATIVE: CASE EVENT DATE: 20150901
